FAERS Safety Report 16843662 (Version 4)
Quarter: 2024Q4

REPORT INFORMATION
  Report Type: Spontaneous
  Country: GB (occurrence: GB)
  Receive Date: 20190924
  Receipt Date: 20241121
  Transmission Date: 20250114
  Serious: Yes (Other)
  Sender: TEVA
  Company Number: None

PATIENT
  Sex: Male

DRUGS (15)
  1. OLANZAPINE [Suspect]
     Active Substance: OLANZAPINE
     Indication: Product used for unknown indication
     Dosage: 10 MILLIGRAM, QD (10 UNK)10 MILLIGRAM, QD PRN, 10 MG DAILY
     Route: 048
  2. OLANZAPINE [Suspect]
     Active Substance: OLANZAPINE
     Indication: Product used for unknown indication
     Dosage: 5 MILLIGRAM, ONCE A DAY, 5 MG DAILY
     Route: 048
  3. PROMETHAZINE [Suspect]
     Active Substance: PROMETHAZINE HYDROCHLORIDE
     Dosage: AT NIGHT., 25 MG DAILY
     Route: 065
  4. MIRTAZAPINE [Suspect]
     Active Substance: MIRTAZAPINE
     Indication: Product used for unknown indication
     Dosage: NIGHT, 30 MG DAILY
     Route: 048
  5. FOLIC ACID [Suspect]
     Active Substance: FOLIC ACID
     Indication: Folate deficiency
     Dosage: 5 MILLIGRAM, DAILY,MORNING, 5 MILLIGRAM, ONCE A DAY, MORNING
     Route: 048
  6. AZATHIOPRINE [Suspect]
     Active Substance: AZATHIOPRINE
     Indication: Colitis
     Dosage: MORNING, LUNCH AND TEA TIME (WITH OR JUST AFTER FOOD/MEAL)(WITH OR JUST AFTER FOOD/MEAL), 75 MILLIGR
     Route: 048
  7. AZATHIOPRINE [Suspect]
     Active Substance: AZATHIOPRINE
     Indication: Colitis
     Dosage: 75 MG DAILY
     Route: 065
  8. ESCITALOPRAM [Suspect]
     Active Substance: ESCITALOPRAM OXALATE
     Indication: Product used for unknown indication
     Dosage: EACH MORNING., 10 MG DAILY
     Route: 048
  9. DIHYDROCODEINE [Suspect]
     Active Substance: DIHYDROCODEINE
     Indication: Pain
     Dosage: 60 MILLIGRAM, QID, 240 MG, Q6H, FOUR TIMES DAILY. WITH OR JUST AFTER FOOD/MEAL
     Route: 048
  10. DIHYDROCODEINE [Suspect]
     Active Substance: DIHYDROCODEINE
     Indication: Pain
     Dosage: TAKE WITH OR JUST AFTER FOOD., 240 MG DAILY
     Route: 065
  11. FERROUS GLUCONATE [Suspect]
     Active Substance: FERROUS GLUCONATE
     Indication: Anaemia
     Dosage: 210 MILLIGRAM, QD (MORNING AND NIGHT), 210 MILLIGRAM, TWO TIMES A DAY, 840 MILLIGRAM, QD, MORNING AN
     Route: 048
  12. FERROUS GLUCONATE [Suspect]
     Active Substance: FERROUS GLUCONATE
     Indication: Anaemia
     Dosage: 420MG, QD (210 MILLIGRAM, BID, (EVERY 12 HOURS DAILY, MORNING AND NIGHT), (MORNING AND N)), 420 M...
     Route: 048
  13. FERROUS GLUCONATE [Suspect]
     Active Substance: FERROUS GLUCONATE
     Indication: Anaemia
     Dosage: 840 MILLIGRAM, QD (420 MILLIGRAM, DAILY MORNING AND NIGHT), 840 MG DAILY
     Route: 048
  14. IRON [Suspect]
     Active Substance: IRON
     Indication: Anaemia
     Dosage: 420 MILLIGRAM, QD, (210 MG, BID)
     Route: 048
  15. IRON [Suspect]
     Active Substance: IRON
     Indication: Anaemia
     Dosage: 420 MILLIGRAM, QD, (210 MG, BID),
     Route: 048

REACTIONS (3)
  - Seizure [Unknown]
  - Overdose [Unknown]
  - Autoscopy [Unknown]
